FAERS Safety Report 13234182 (Version 2)
Quarter: 2017Q1

REPORT INFORMATION
  Report Type: Spontaneous
  Country: BR (occurrence: BR)
  Receive Date: 20170215
  Receipt Date: 20170310
  Transmission Date: 20170428
  Serious: Yes (Hospitalization, Other)
  Sender: FDA-Public Use
  Company Number: BR-GLAXOSMITHKLINE-BR2017GSK020091

PATIENT
  Sex: Female
  Weight: 157 kg

DRUGS (5)
  1. SERETIDE [Suspect]
     Active Substance: FLUTICASONE PROPIONATE\SALMETEROL XINAFOATE
     Indication: ASTHMA
  2. METFORMIN [Concomitant]
     Active Substance: METFORMIN HYDROCHLORIDE
     Indication: GLUCOSE TOLERANCE IMPAIRED
     Dosage: 1 UNK, QD
     Route: 048
  3. LOSARTAN. [Concomitant]
     Active Substance: LOSARTAN
     Indication: BLOOD PRESSURE MEASUREMENT
     Dosage: 1 UNK, QD
     Route: 048
  4. SERETIDE [Suspect]
     Active Substance: FLUTICASONE PROPIONATE\SALMETEROL XINAFOATE
     Indication: ALLERGIC BRONCHITIS
     Dosage: 2 PUFF(S), BID
     Route: 055
  5. LEVOTHYROXINE. [Concomitant]
     Active Substance: LEVOTHYROXINE
     Indication: HYPOTHYROIDISM
     Dosage: 1 UNK, QD
     Route: 048

REACTIONS (10)
  - Overdose [Unknown]
  - Dyspnoea [Recovered/Resolved]
  - Ill-defined disorder [Recovered/Resolved]
  - Product quality issue [Unknown]
  - Fatigue [Recovered/Resolved]
  - Wheezing [Recovered/Resolved]
  - Cough [Recovered/Resolved]
  - Infection [Recovered/Resolved]
  - Hypersensitivity [Recovered/Resolved]
  - Asthmatic crisis [Unknown]
